FAERS Safety Report 4865358-8 (Version None)
Quarter: 2005Q4

REPORT INFORMATION
  Report Type: 
  Country: None (occurrence: None)
  Receive Date: 20051223
  Receipt Date: 20051216
  Transmission Date: 20060501
  Serious: Yes (Hospitalization)
  Sender: FDA-Public Use
  Company Number: BE-ABBOTT-05P-013-0320258-00

PATIENT

DRUGS (6)
  1. HUMIRA [Suspect]
     Indication: RHEUMATOID ARTHRITIS
     Route: 058
     Dates: start: 20040705
  2. METHYLPREDNISOLONE [Concomitant]
     Indication: DRUG USE FOR UNKNOWN INDICATION
     Route: 048
  3. NAPROXEN SODIUM [Concomitant]
     Indication: DRUG USE FOR UNKNOWN INDICATION
  4. DAPALGAN [Concomitant]
     Indication: DRUG USE FOR UNKNOWN INDICATION
  5. LEKOVIT CA [Concomitant]
     Indication: DRUG USE FOR UNKNOWN INDICATION
     Dosage: 1000/880
     Route: 048
  6. ALENDRONATE SODIUM [Concomitant]
     Indication: DRUG USE FOR UNKNOWN INDICATION
     Route: 048

REACTIONS (3)
  - DIABETES MELLITUS NON-INSULIN-DEPENDENT [None]
  - FALL [None]
  - HYPERGLYCAEMIA [None]
